FAERS Safety Report 16970745 (Version 6)
Quarter: 2020Q3

REPORT INFORMATION
  Report Type: Report from Study
  Country: IT (occurrence: IT)
  Receive Date: 20191029
  Receipt Date: 20200925
  Transmission Date: 20201102
  Serious: Yes (Other)
  Sender: FDA-Public Use
  Company Number: IT-INCYTE CORPORATION-2018IN012560

PATIENT

DRUGS (11)
  1. ACICLOVIR [Concomitant]
     Active Substance: ACYCLOVIR
     Indication: ANTIVIRAL PROPHYLAXIS
     Dosage: 400 UNK
     Route: 065
     Dates: start: 20180310
  2. TRIATEC [RAMIPRIL] [Concomitant]
     Active Substance: RAMIPRIL
     Indication: BLOOD PRESSURE INCREASED
     Dosage: 5 OT
     Route: 065
     Dates: start: 20180605, end: 20180904
  3. JAKAVI [Suspect]
     Active Substance: RUXOLITINIB
     Indication: POLYCYTHAEMIA VERA
     Dosage: 20 UNK
     Route: 048
     Dates: start: 20180310
  4. CLEXANE [Concomitant]
     Active Substance: ENOXAPARIN SODIUM
     Indication: ASPIRATION
     Dosage: 4000 UNK
     Route: 065
     Dates: start: 20190907, end: 20190909
  5. CLEXANE [Concomitant]
     Active Substance: ENOXAPARIN SODIUM
     Indication: PARATHYROIDECTOMY
     Dosage: 4000 UNK
     Route: 065
     Dates: start: 20191215, end: 20191230
  6. COUMADIN [Concomitant]
     Active Substance: WARFARIN SODIUM
     Dosage: 2.5 UNK
     Route: 065
     Dates: start: 20190911, end: 20191214
  7. LOBIVON [Concomitant]
     Active Substance: NEBIVOLOL HYDROCHLORIDE
     Indication: BLOOD PRESSURE INCREASED
     Dosage: 2.5 UNK
     Route: 065
     Dates: start: 20180605, end: 20181029
  8. LOBIVON [Concomitant]
     Active Substance: NEBIVOLOL HYDROCHLORIDE
     Indication: THYROID MASS
     Dosage: UNK
     Route: 065
     Dates: start: 20190911, end: 20190911
  9. ACETYLSALICYLIC ACID;ALUMINIUM GLYCINATE;MAGNESIUM CARBONATE [Concomitant]
     Active Substance: ASPIRIN\DIHYDROXYALUMINUM AMINOACETATE ANHYDROUS\MAGNESIUM CARBONATE
     Indication: ANTICOAGULANT THERAPY
     Dosage: 100 UNK
     Route: 065
     Dates: start: 20190911, end: 20191214
  10. COUMADIN [Concomitant]
     Active Substance: WARFARIN SODIUM
     Indication: ANTICOAGULANT THERAPY
     Dosage: 2.5 UNK
     Route: 065
     Dates: start: 20131220, end: 20190904
  11. CLEXANE [Concomitant]
     Active Substance: ENOXAPARIN SODIUM
     Indication: THYROID MASS

REACTIONS (15)
  - Anaemia [Recovered/Resolved]
  - Basal cell carcinoma [Recovered/Resolved]
  - Skin hypertrophy [Recovered/Resolved]
  - Thrombocytosis [Recovering/Resolving]
  - Thyroid mass [Recovering/Resolving]
  - Arthralgia [Recovered/Resolved]
  - Second primary malignancy [Recovered/Resolved]
  - Disturbance in attention [Unknown]
  - Second primary malignancy [Recovered/Resolved]
  - Basal cell carcinoma [Recovered/Resolved]
  - Chills [Recovered/Resolved]
  - Anaemia [Recovered/Resolved]
  - Hypertension [Not Recovered/Not Resolved]
  - Thrombocytosis [Recovered/Resolved]
  - Erythema [Recovered/Resolved]

NARRATIVE: CASE EVENT DATE: 20180508
